FAERS Safety Report 13211618 (Version 3)
Quarter: 2017Q2

REPORT INFORMATION
  Report Type: Report from Study
  Country: None (occurrence: CA)
  Receive Date: 20170209
  Receipt Date: 20170606
  Transmission Date: 20170830
  Serious: Yes (Hospitalization, Other)
  Sender: FDA-Public Use
  Company Number: CA-ABBVIE-17P-028-1868414-00

PATIENT
  Age: 67 Year
  Sex: Male
  Weight: 70.82 kg

DRUGS (2)
  1. LUPRON DEPOT [Suspect]
     Active Substance: LEUPROLIDE ACETATE
     Indication: PROSTATE CANCER
     Route: 030
     Dates: start: 20140620
  2. LUPRON DEPOT [Suspect]
     Active Substance: LEUPROLIDE ACETATE
     Route: 030

REACTIONS (6)
  - Blood urine present [Unknown]
  - Urinary retention [Recovering/Resolving]
  - Haemorrhage [Unknown]
  - Ureteric obstruction [Recovering/Resolving]
  - Haemoglobin decreased [Recovered/Resolved]
  - Ureteric obstruction [Unknown]

NARRATIVE: CASE EVENT DATE: 201612
